FAERS Safety Report 8033571-7 (Version None)
Quarter: 2012Q1

REPORT INFORMATION
  Report Type: 
  Country: None (occurrence: None)
  Receive Date: 20120110
  Receipt Date: 20120105
  Transmission Date: 20120608
  Serious: Yes (Death, Hospitalization)
  Sender: FDA-Public Use
  Company Number: US-PFIZER INC-2010058503

PATIENT
  Age: 27 Year
  Sex: Female

DRUGS (9)
  1. TIZANIDINE HCL [Suspect]
  2. BUPROPION [Concomitant]
     Dosage: UNK
  3. TRAZODONE [Concomitant]
  4. TRAMADOL [Concomitant]
     Dosage: UNK
  5. IBUPROFEN [Concomitant]
  6. SUMATRIPTAN SUCCINATE [Concomitant]
     Dosage: UNK
  7. AZITHROMYCIN [Suspect]
     Indication: UPPER RESPIRATORY TRACT INFECTION
  8. ZOLPIDEM [Concomitant]
  9. FEXOFENADINE [Concomitant]

REACTIONS (1)
  - TORSADE DE POINTES [None]
